FAERS Safety Report 9808214 (Version 1)
Quarter: 2014Q1

REPORT INFORMATION
  Report Type: Spontaneous
  Country: US (occurrence: US)
  Receive Date: 20140110
  Receipt Date: 20140110
  Transmission Date: 20141002
  Serious: Yes (Hospitalization, Other)
  Sender: FDA-Public Use
  Company Number: US-TARO-2014P1000025

PATIENT
  Age: 65 Year
  Sex: Female
  Weight: 88 kg

DRUGS (8)
  1. WARFARIN SODIUM TABLETS USP 1MG [Suspect]
     Route: 048
     Dates: start: 1999
  2. WARFARIN SODIUM TABLETS USP 2MG [Suspect]
     Route: 048
     Dates: start: 1999
  3. Z-PAK [Suspect]
     Indication: PLEURISY
     Dates: start: 201211
  4. Z-PAK [Suspect]
     Dates: start: 201211
  5. METFORMIN [Concomitant]
  6. BLOOD PRESSURE MEDICATION (UNSPECIFIED) [Concomitant]
  7. CHOLESTEROL MEDICATION (UNSPECIFIED) [Concomitant]
  8. PSYCHIATRIC MEDICATION  (UNSPECIFIED) [Concomitant]

REACTIONS (5)
  - International normalised ratio increased [Unknown]
  - Pericardial haemorrhage [Recovered/Resolved]
  - Pleurisy [Recovered/Resolved]
  - Haemothorax [Recovered/Resolved]
  - Nasopharyngitis [Recovered/Resolved]
